FAERS Safety Report 24223939 (Version 4)
Quarter: 2025Q3

REPORT INFORMATION
  Report Type: Spontaneous
  Country: US (occurrence: US)
  Receive Date: 20240819
  Receipt Date: 20250810
  Transmission Date: 20251021
  Serious: No
  Sender: ALEXION PHARMACEUTICALS
  Company Number: 2024A186582

PATIENT
  Age: 59 Year
  Sex: Female

DRUGS (1)
  1. BREZTRI [Suspect]
     Active Substance: BUDESONIDE\FORMOTEROL\GLYCOPYRROLATE
     Dosage: UNK UNK, QD

REACTIONS (6)
  - Osteoporosis [Unknown]
  - Osteopenia [Unknown]
  - Cough [Unknown]
  - Wrong technique in product usage process [Unknown]
  - Off label use [Unknown]
  - Device mechanical issue [Unknown]

NARRATIVE: CASE EVENT DATE: 20240811
